FAERS Safety Report 4356661-9 (Version None)
Quarter: 2004Q2

REPORT INFORMATION
  Report Type: 
  Country: None (occurrence: None)
  Receive Date: 20040511
  Receipt Date: 20040511
  Transmission Date: 20050107
  Serious: Yes (Life-Threatening)
  Sender: FDA-Public Use
  Company Number: None

PATIENT
  Age: 73 Year
  Sex: Female
  Weight: 68.0396 kg

DRUGS (1)
  1. ANCEF [Suspect]
     Indication: PROPHYLAXIS
     Dosage: 1 GRAM IV ONE TIME ONLY
     Route: 042
     Dates: start: 20040102

REACTIONS (4)
  - ANAPHYLACTIC REACTION [None]
  - HYPOTENSION [None]
  - HYPOXIA [None]
  - MYOCARDIAL INFARCTION [None]
